FAERS Safety Report 5396166-X (Version None)
Quarter: 2007Q3

REPORT INFORMATION
  Report Type: 
  Country: None (occurrence: None)
  Receive Date: 20070725
  Receipt Date: 20070717
  Transmission Date: 20080115
  Serious: No
  Sender: FDA-Public Use
  Company Number: US-ELI_LILLY_AND_COMPANY-US200706000531

PATIENT
  Sex: Female

DRUGS (2)
  1. EVISTA [Suspect]
     Indication: OSTEOPOROSIS
     Dosage: 60 MG, UNK
     Route: 048
     Dates: start: 19900101
  2. ROFECOXIB [Concomitant]
     Route: 048

REACTIONS (3)
  - FAT TISSUE INCREASED [None]
  - NON-CARDIAC CHEST PAIN [None]
  - PLEURISY [None]
